FAERS Safety Report 8350153-8 (Version None)
Quarter: 2012Q2

REPORT INFORMATION
  Report Type: 
  Country: None (occurrence: None)
  Receive Date: 20120510
  Receipt Date: 20120427
  Transmission Date: 20120825
  Serious: Yes (Other)
  Sender: FDA-Public Use
  Company Number: IT-CELGENEUS-083-21880-12043007

PATIENT
  Sex: Male

DRUGS (6)
  1. ASPIRIN [Concomitant]
     Dosage: 100 MILLIGRAM
     Route: 048
     Dates: start: 20120302, end: 20120412
  2. LEVOTHYROXINE SODIUM [Concomitant]
     Route: 065
  3. LOSARTAN POTASSIUM [Concomitant]
     Route: 065
  4. SEQUACOR [Concomitant]
     Route: 065
  5. OMEPRAZOLE [Concomitant]
     Route: 065
  6. REVLIMID [Suspect]
     Dosage: 10 MILLIGRAM
     Dates: start: 20120302, end: 20120412

REACTIONS (1)
  - ARTERIAL THROMBOSIS LIMB [None]
